FAERS Safety Report 18228642 (Version 1)
Quarter: 2020Q3

REPORT INFORMATION
  Report Type: Spontaneous
  Country: US (occurrence: US)
  Receive Date: 20200903
  Receipt Date: 20200903
  Transmission Date: 20201103
  Serious: No
  Sender: FDA-Public Use
  Company Number: US-BECTON DICKINSON-2020BDN00168

PATIENT
  Sex: Female
  Weight: 59.41 kg

DRUGS (6)
  1. OPSUMIT [Concomitant]
     Active Substance: MACITENTAN
  2. CHLORAPREP [Suspect]
     Active Substance: CHLORHEXIDINE GLUCONATE\ISOPROPYL ALCOHOL
     Indication: INFECTION PROPHYLAXIS
     Route: 061
  3. REMODULIN [Suspect]
     Active Substance: TREPROSTINIL
     Indication: PULMONARY ARTERIAL HYPERTENSION
     Dosage: 0.016 ?G/KG, CONTINUOUS
     Route: 042
     Dates: start: 20190417
  4. REMODULIN [Suspect]
     Active Substance: TREPROSTINIL
     Dosage: 0.0178 ?G/KG, CONTINUOUS
     Route: 042
  5. REMODULIN [Suspect]
     Active Substance: TREPROSTINIL
     Dosage: 0.0196 ?G/KG, CONTINUOUS
     Route: 042
  6. REMODULIN [Suspect]
     Active Substance: TREPROSTINIL
     Dosage: 0.0194 ?G/KG, CONTINUOUS
     Route: 042

REACTIONS (5)
  - Catheter site irritation [Unknown]
  - Catheter site swelling [Recovering/Resolving]
  - Catheter site pain [Recovering/Resolving]
  - Catheter site mass [Recovering/Resolving]
  - Catheter site erythema [Recovering/Resolving]
